FAERS Safety Report 11517864 (Version 3)
Quarter: 2015Q4

REPORT INFORMATION
  Report Type: Spontaneous
  Country: US (occurrence: US)
  Receive Date: 20150917
  Receipt Date: 20151013
  Transmission Date: 20160304
  Serious: No
  Sender: FDA-Public Use
  Company Number: US-BAYER-2015-407280

PATIENT
  Age: 17 Year
  Sex: Female

DRUGS (1)
  1. FINACEA [Suspect]
     Active Substance: AZELAIC ACID
     Indication: ROSACEA
     Dosage: UNK
     Dates: start: 20150612, end: 201507

REACTIONS (3)
  - Condition aggravated [Recovered/Resolved]
  - Product use issue [None]
  - Rash papular [None]

NARRATIVE: CASE EVENT DATE: 201506
